FAERS Safety Report 17425014 (Version 1)
Quarter: 2020Q1

REPORT INFORMATION
  Report Type: Report from Study
  Country: None (occurrence: US)
  Receive Date: 20200218
  Receipt Date: 20200218
  Transmission Date: 20200409
  Serious: Yes (Other)
  Sender: FDA-Public Use
  Company Number: US-ABBVIE-20P-163-3273142-00

PATIENT
  Sex: Female

DRUGS (2)
  1. IMBRUVICA [Suspect]
     Active Substance: IBRUTINIB
     Indication: MANTLE CELL LYMPHOMA
     Route: 048
     Dates: start: 201204
  2. IMBRUVICA [Suspect]
     Active Substance: IBRUTINIB
     Indication: MANTLE CELL LYMPHOMA
     Route: 048

REACTIONS (6)
  - Hypoacusis [Not Recovered/Not Resolved]
  - Hip arthroplasty [Recovered/Resolved]
  - Bronchitis [Recovering/Resolving]
  - Weight decreased [Unknown]
  - Neuropathy peripheral [Not Recovered/Not Resolved]
  - Wheezing [Recovering/Resolving]
